FAERS Safety Report 7074859-6 (Version None)
Quarter: 2010Q4

REPORT INFORMATION
  Report Type: 
  Country: None (occurrence: None)
  Receive Date: 20101029
  Receipt Date: 20101018
  Transmission Date: 20110411
  Serious: Yes (Other)
  Sender: FDA-Public Use
  Company Number: PHHY2010US69895

PATIENT
  Sex: Female

DRUGS (1)
  1. EXJADE [Suspect]
     Indication: NEOPLASM MALIGNANT
     Dosage: 500 MG, BID
     Route: 048
     Dates: start: 20070711

REACTIONS (1)
  - SHOULDER OPERATION [None]
